FAERS Safety Report 10083379 (Version 4)
Quarter: 2014Q2

REPORT INFORMATION
  Report Type: Spontaneous
  Country: US (occurrence: None)
  Receive Date: 20140415
  Receipt Date: 20140507
  Transmission Date: 20141212
  Serious: Yes (Other)
  Sender: FDA-Public Use
  Company Number: 2014-US-004004

PATIENT
  Age: 34 Year
  Sex: Male
  Weight: 77.1 kg

DRUGS (10)
  1. XYREM [Suspect]
     Indication: NARCOLEPSY
     Route: 048
     Dates: start: 20140329, end: 2014
  2. XYREM [Suspect]
     Indication: CATAPLEXY
     Route: 048
     Dates: start: 20140329, end: 2014
  3. LISINOPRIL [Concomitant]
  4. AMLODIPINE (AMLODIPINE MESILATE) [Concomitant]
  5. HYDROCHLOROTHIAZIDE [Concomitant]
  6. NOVOLOG (INSULIN ASPART) [Concomitant]
  7. LEVEMIR (INSULIN DETEMIR) [Concomitant]
  8. MODAFINIL [Concomitant]
  9. RITALIN (METHYLPHENIDATE HYDROCHOLORIDE) [Concomitant]
  10. ZOLOFT (SERTRALINE HYDROCHLOIRIDE) TABLET [Concomitant]

REACTIONS (18)
  - Convulsion [None]
  - Condition aggravated [None]
  - Apnoea [None]
  - Hypoglycaemia [None]
  - Weight decreased [None]
  - Fatigue [None]
  - Rapid eye movements sleep abnormal [None]
  - Balance disorder [None]
  - Tremor [None]
  - Dyspnoea [None]
  - Sleep paralysis [None]
  - Confusional state [None]
  - Hyperhidrosis [None]
  - Drug administration error [None]
  - Blood glucose increased [None]
  - Somnolence [None]
  - Abnormal behaviour [None]
  - Complex partial seizures [None]
